FAERS Safety Report 18456068 (Version 4)
Quarter: 2020Q4

REPORT INFORMATION
  Report Type: Spontaneous
  Country: US (occurrence: US)
  Receive Date: 20201103
  Receipt Date: 20201212
  Transmission Date: 20210114
  Serious: Yes (Other)
  Sender: FDA-Public Use
  Company Number: NVSC2020US294046

PATIENT
  Sex: Female

DRUGS (1)
  1. TYKERB [Suspect]
     Active Substance: LAPATINIB DITOSYLATE
     Indication: BRAIN NEOPLASM MALIGNANT
     Dosage: 1250 MG, QD
     Route: 048
     Dates: start: 20200721, end: 202010

REACTIONS (8)
  - Nausea [Unknown]
  - Vomiting [Unknown]
  - Fatigue [Unknown]
  - Full blood count decreased [Unknown]
  - Brain neoplasm malignant [Unknown]
  - Malignant neoplasm progression [Unknown]
  - Drug ineffective for unapproved indication [Unknown]
  - Diarrhoea [Unknown]
